FAERS Safety Report 8332593-6 (Version None)
Quarter: 2012Q2

REPORT INFORMATION
  Report Type: 
  Country: None (occurrence: None)
  Receive Date: 20120503
  Receipt Date: 20120424
  Transmission Date: 20120825
  Serious: Yes (Other)
  Sender: FDA-Public Use
  Company Number: US-BAYER-2012-017421

PATIENT
  Age: 21 Year
  Sex: Female
  Weight: 66 kg

DRUGS (16)
  1. DROSPIRENONE AND ETHINYL ESTRADIOL [Suspect]
     Indication: ACNE
  2. SULFAMETHOXAZOLE AND TRIMETHOPRIM [Concomitant]
     Dosage: TAB,UNK
  3. ZITHROMAX [Concomitant]
     Dosage: 250 MG, UNK
     Route: 048
     Dates: start: 20090108
  4. AUGMENTIN [Concomitant]
     Dosage: 875 MG, UNK
     Route: 048
     Dates: start: 20090108
  5. OMEPRAZOLE [Concomitant]
     Dosage: 40 MG CAP, UNK
     Dates: start: 20110815
  6. YASMIN [Suspect]
     Indication: ACNE
  7. DIFLUCAN [Concomitant]
     Dosage: 150 MG, QD
     Route: 048
     Dates: start: 20090108
  8. SEASONIQUE [Concomitant]
     Dosage: 1 TABLET DAILY
     Route: 048
     Dates: start: 20091001
  9. BACTRIM DS [Concomitant]
     Dosage: UNK
     Route: 048
     Dates: start: 20110815
  10. YASMIN [Suspect]
     Indication: CONTRACEPTION
     Dosage: UNK
     Dates: start: 20060101, end: 20110801
  11. DROSPIRENONE AND ETHINYL ESTRADIOL [Suspect]
     Indication: CONTRACEPTION
     Dosage: UNK
     Dates: start: 20060101, end: 20110801
  12. AUGMENTIN [Concomitant]
     Dosage: 875 MG, UNK
     Route: 048
     Dates: start: 20090423
  13. FLONASE [Concomitant]
     Dosage: 50 ?G, EACH NOSTRIL
     Route: 045
     Dates: start: 20090108
  14. AUGMENTIN [Concomitant]
     Dosage: 875 MG, UNK
     Route: 048
     Dates: start: 20091001
  15. SEASONIQUE [Concomitant]
     Dosage: UNK
  16. IBUPROFEN [Concomitant]
     Indication: ANALGESIC THERAPY
     Dosage: UNK
     Dates: start: 20090101, end: 20110101

REACTIONS (4)
  - CHOLECYSTITIS CHRONIC [None]
  - PAIN [None]
  - GALLBLADDER DISORDER [None]
  - EMOTIONAL DISTRESS [None]
